FAERS Safety Report 8789309 (Version 1)
Quarter: 2012Q4

REPORT INFORMATION
  Report Type: Spontaneous
  Country: US (occurrence: None)
  Receive Date: 20120910
  Receipt Date: 20120910
  Transmission Date: 20130627
  Serious: No
  Sender: FDA-Public Use
  Company Number: None

PATIENT
  Age: 63 Year
  Sex: Male
  Weight: 89.81 kg

DRUGS (1)
  1. CATAPRES [Suspect]
     Indication: HYPERTENSION
     Dates: start: 20120731

REACTIONS (5)
  - Dizziness [None]
  - Heart rate irregular [None]
  - Dry mouth [None]
  - Feeling abnormal [None]
  - Anxiety [None]
